FAERS Safety Report 25726724 (Version 1)
Quarter: 2025Q3

REPORT INFORMATION
  Report Type: Spontaneous
  Country: US (occurrence: US)
  Receive Date: 20250826
  Receipt Date: 20250826
  Transmission Date: 20251020
  Serious: Yes (Other)
  Sender: AMNEAL
  Company Number: US-AMNEAL PHARMACEUTICALS-2025-AMRX-03159

PATIENT
  Sex: Male

DRUGS (1)
  1. COLESTIPOL HYDROCHLORIDE [Suspect]
     Active Substance: COLESTIPOL HYDROCHLORIDE
     Indication: Product used for unknown indication
     Dosage: UNK, DAILY
     Route: 048
     Dates: start: 2025

REACTIONS (3)
  - Choking [Not Recovered/Not Resolved]
  - Product use complaint [Unknown]
  - Product quality issue [Unknown]

NARRATIVE: CASE EVENT DATE: 20250101
